FAERS Safety Report 4283682-7 (Version None)
Quarter: 2004Q1

REPORT INFORMATION
  Report Type: 
  Country: None (occurrence: None)
  Receive Date: 20040202
  Receipt Date: 20040126
  Transmission Date: 20041129
  Serious: Yes (Other)
  Sender: FDA-Public Use
  Company Number: PHBS2004EC01322

PATIENT
  Age: 62 Year
  Sex: Female

DRUGS (1)
  1. LAMISIL [Suspect]
     Indication: NAIL TINEA
     Dosage: 250 MG, QD
     Route: 048
     Dates: start: 20040114, end: 20040117

REACTIONS (5)
  - GENERALISED OEDEMA [None]
  - PRURITUS [None]
  - RASH [None]
  - SKIN IRRITATION [None]
  - URTICARIA [None]
